FAERS Safety Report 5189665-7 (Version None)
Quarter: 2006Q4

REPORT INFORMATION
  Report Type: 
  Country: None (occurrence: None)
  Receive Date: 20061221
  Receipt Date: 20051101
  Transmission Date: 20070319
  Serious: No
  Sender: FDA-Public Use
  Company Number: US-AMGEN-US156276

PATIENT
  Sex: Female

DRUGS (11)
  1. ENBREL [Suspect]
     Indication: RHEUMATOID ARTHRITIS
     Route: 058
     Dates: start: 20000501
  2. LASIX [Concomitant]
     Route: 065
  3. POTASSIUM ACETATE [Concomitant]
     Route: 065
  4. NEXIUM [Concomitant]
     Route: 065
  5. TOPROL-XL [Concomitant]
     Route: 065
  6. PREDNISONE TAB [Concomitant]
     Route: 065
  7. ACTONEL [Concomitant]
     Route: 065
  8. PAXIL [Concomitant]
     Route: 065
  9. CLONAZEPAM [Concomitant]
     Route: 065
  10. ASPIRIN [Concomitant]
     Route: 065
  11. MIACALCIN [Concomitant]
     Route: 065

REACTIONS (1)
  - IMPAIRED HEALING [None]
